FAERS Safety Report 8494046-4 (Version None)
Quarter: 2012Q3

REPORT INFORMATION
  Report Type: 
  Country: None (occurrence: None)
  Receive Date: 20120709
  Receipt Date: 20120702
  Transmission Date: 20120928
  Serious: No
  Sender: FDA-Public Use
  Company Number: US-BIOGENIDEC-2012BI023698

PATIENT
  Sex: Male

DRUGS (5)
  1. AVONEX [Suspect]
     Indication: MULTIPLE SCLEROSIS
     Route: 030
     Dates: start: 19961115, end: 20030101
  2. AVONEX [Suspect]
     Route: 030
     Dates: start: 20030101, end: 20120601
  3. ACETAMINOPHEN [Concomitant]
     Indication: PREMEDICATION
  4. AVONEX [Suspect]
     Route: 030
     Dates: start: 20120618
  5. AVONEX [Suspect]
     Route: 030
     Dates: start: 20030101, end: 20030101

REACTIONS (2)
  - INFLUENZA LIKE ILLNESS [None]
  - INJECTION SITE LACERATION [None]
